FAERS Safety Report 24045238 (Version 1)
Quarter: 2024Q3

REPORT INFORMATION
  Report Type: Spontaneous
  Country: US (occurrence: None)
  Receive Date: 20240702
  Receipt Date: 20240702
  Transmission Date: 20241016
  Serious: Yes (Hospitalization)
  Sender: Public
  Company Number: None

PATIENT
  Age: 61 Year
  Sex: Female

DRUGS (1)
  1. HUMIRA [Suspect]
     Active Substance: ADALIMUMAB
     Indication: Sarcoidosis
     Dosage: FREQUENCY : EVERY OTHER WEEK;?

REACTIONS (4)
  - Hypertension [None]
  - Autonomic nervous system imbalance [None]
  - Injection site reaction [None]
  - Fatigue [None]

NARRATIVE: CASE EVENT DATE: 20240609
